FAERS Safety Report 21697829 (Version 2)
Quarter: 2023Q1

REPORT INFORMATION
  Report Type: Report from Study
  Country: US (occurrence: US)
  Receive Date: 20221208
  Receipt Date: 20230206
  Transmission Date: 20230418
  Serious: Yes (Other)
  Sender: FDA-Public Use
  Company Number: US-BIOGEN-2022BI01122684

PATIENT
  Sex: Female

DRUGS (1)
  1. TYSABRI [Suspect]
     Active Substance: NATALIZUMAB
     Indication: Multiple sclerosis
     Route: 050
     Dates: start: 20220225

REACTIONS (8)
  - Seizure [Unknown]
  - Suicidal ideation [Unknown]
  - Amnesia [Unknown]
  - Confusional state [Unknown]
  - Ligament rupture [Unknown]
  - Cerebral disorder [Unknown]
  - Anxiety [Unknown]
  - Depressed mood [Unknown]
